FAERS Safety Report 9838226 (Version 1)
Quarter: 2014Q1

REPORT INFORMATION
  Report Type: Spontaneous
  Country: CA (occurrence: CA)
  Receive Date: 20140123
  Receipt Date: 20140123
  Transmission Date: 20141002
  Serious: Yes (Other)
  Sender: FDA-Public Use
  Company Number: CA-009507513-1401CAN009142

PATIENT
  Age: 25 Year
  Sex: Male

DRUGS (6)
  1. TEMODAL [Suspect]
     Dosage: UNK
     Route: 065
     Dates: start: 201306
  2. LOMUSTINE [Suspect]
     Dosage: UNK
     Route: 065
     Dates: start: 201310
  3. AVASTATIN [Suspect]
     Indication: GLIOBLASTOMA
     Dosage: Q 2 WEEKS
     Route: 065
     Dates: start: 201305, end: 201309
  4. FRAGMIN [Concomitant]
     Route: 065
  5. KEPPRA [Concomitant]
     Route: 065
  6. CLOBAZAM [Concomitant]
     Route: 065

REACTIONS (2)
  - Neoplasm [Not Recovered/Not Resolved]
  - Thrombosis [Recovered/Resolved]
